FAERS Safety Report 12306892 (Version 1)
Quarter: 2016Q2

REPORT INFORMATION
  Report Type: Spontaneous
  Country: US (occurrence: US)
  Receive Date: 20160426
  Receipt Date: 20160426
  Transmission Date: 20160815
  Serious: Yes (Life-Threatening)
  Sender: FDA-Public Use
  Company Number: GXBR2016US001309

PATIENT
  Age: 58 Year
  Sex: Male
  Weight: 54.42 kg

DRUGS (4)
  1. MYFORTIC [Concomitant]
     Active Substance: MYCOPHENOLATE SODIUM
     Indication: RENAL TRANSPLANT
     Dosage: UNK DF, UNK
     Route: 065
  2. TACROLIMUS. [Suspect]
     Active Substance: TACROLIMUS
     Indication: IMMUNOSUPPRESSION
     Dosage: 2.5 MG, Q12H
     Route: 048
     Dates: end: 2014
  3. TACROLIMUS ACCORD [Suspect]
     Active Substance: TACROLIMUS
     Indication: IMMUNOSUPPRESSION
     Dosage: 2.5 MG, Q12H
     Route: 048
     Dates: end: 2014
  4. PREDNISONE. [Concomitant]
     Active Substance: PREDNISONE
     Indication: RENAL TRANSPLANT
     Dosage: UNK DF, UNK
     Route: 065

REACTIONS (8)
  - Skin exfoliation [Recovered/Resolved]
  - Onychomadesis [Recovering/Resolving]
  - Hypersensitivity [Recovering/Resolving]
  - Malaise [Recovering/Resolving]
  - Weight increased [Recovered/Resolved]
  - Abasia [Recovering/Resolving]
  - Weight decreased [Recovered/Resolved]
  - Skin burning sensation [Recovered/Resolved]
